FAERS Safety Report 8922459 (Version 1)
Quarter: 2012Q4

REPORT INFORMATION
  Report Type: 
  Country: MX (occurrence: MX)
  Receive Date: 20121123
  Receipt Date: 20121123
  Transmission Date: 20130627
  Serious: Yes (Death)
  Sender: FDA-Public Use
  Company Number: PHHY2012MX105549

PATIENT
  Age: 72 Year
  Sex: Male

DRUGS (1)
  1. EXELON PATCH [Suspect]
     Indication: DEMENTIA ALZHEIMER^S TYPE
     Dosage: 4.6 mg, QD
     Dates: start: 20120116

REACTIONS (4)
  - Pneumonia [Fatal]
  - Pseudomonas infection [Fatal]
  - Septic shock [Fatal]
  - Poisoning [Fatal]
